FAERS Safety Report 5404782-1 (Version None)
Quarter: 2007Q3

REPORT INFORMATION
  Report Type: 
  Country: None (occurrence: None)
  Receive Date: 20070713
  Receipt Date: 20061206
  Transmission Date: 20080115
  Serious: Yes (Hospitalization)
  Sender: FDA-Public Use
  Company Number: REM_00303_2006

PATIENT
  Age: 65 Year
  Sex: Female

DRUGS (11)
  1. REMODULIN [Suspect]
     Indication: PULMONARY HYPERTENSION
     Dosage: 50 NG/KG/MIN (0.05 UG/KG,1 IN 1 MIN),INTRAVENOUS
     Route: 042
     Dates: start: 20060501
  2. CALCIUM (CALCIUM) [Concomitant]
  3. COUMADIN [Concomitant]
  4. FOLIC ACID [Concomitant]
  5. FOSAMAX [Concomitant]
  6. PLAQUENIL /00072602/ (HYDROXYCHLOROQUINE PHOSPHATE) [Concomitant]
  7. PREDNISOE /00044702/ (PREDNISONE ACETATE) [Concomitant]
  8. TRAMADOL HCL [Concomitant]
  9. PREVACID [Concomitant]
  10. VITAMIN D [Concomitant]
  11. MIACALCIN [Concomitant]

REACTIONS (3)
  - ENTEROBACTER SEPSIS [None]
  - HERPES ZOSTER [None]
  - URINARY TRACT INFECTION [None]
